FAERS Safety Report 10560980 (Version 1)
Quarter: 2014Q4

REPORT INFORMATION
  Report Type: Spontaneous
  Country: GB (occurrence: GB)
  Receive Date: 20141103
  Receipt Date: 20141103
  Transmission Date: 20150529
  Serious: Yes (Other)
  Sender: FDA-Public Use
  Company Number: GB-WATSON-2014-23239

PATIENT
  Age: 49 Year
  Sex: Female
  Weight: 47 kg

DRUGS (2)
  1. OMEPRAZOLE (UNKNOWN) [Suspect]
     Active Substance: OMEPRAZOLE
     Indication: GASTRITIS
     Dosage: 40 MG, DAILY
     Route: 065
     Dates: start: 20140820, end: 20141007
  2. ESCITALOPRAM [Suspect]
     Active Substance: ESCITALOPRAM OXALATE
     Indication: DEPRESSION
     Dosage: 20 MG, DAILY
     Route: 065

REACTIONS (8)
  - Agitation [Unknown]
  - Headache [Unknown]
  - Labelled drug-drug interaction medication error [Unknown]
  - Insomnia [Unknown]
  - Dyskinesia [Unknown]
  - Mental disorder [Unknown]
  - Serotonin syndrome [Recovering/Resolving]
  - Confusional state [Unknown]
